FAERS Safety Report 12317762 (Version 2)
Quarter: 2016Q2

REPORT INFORMATION
  Report Type: Report from Study
  Country: ES (occurrence: ES)
  Receive Date: 20160429
  Receipt Date: 20160505
  Transmission Date: 20160815
  Serious: Yes (Other)
  Sender: FDA-Public Use
  Company Number: ES-ROCHE-1749483

PATIENT
  Age: 66 Year
  Sex: Female
  Weight: 73 kg

DRUGS (1)
  1. KADCYLA [Suspect]
     Active Substance: ADO-TRASTUZUMAB EMTANSINE
     Indication: HER-2 POSITIVE BREAST CANCER
     Route: 065
     Dates: start: 20130813, end: 20151127

REACTIONS (3)
  - Thrombocytopenia [Recovered/Resolved]
  - Transaminases increased [Recovering/Resolving]
  - Asthenia [Recovered/Resolved]

NARRATIVE: CASE EVENT DATE: 20150616
